FAERS Safety Report 16050786 (Version 2)
Quarter: 2019Q2

REPORT INFORMATION
  Report Type: Spontaneous
  Country: CH (occurrence: CH)
  Receive Date: 20190308
  Receipt Date: 20190401
  Transmission Date: 20190711
  Serious: Yes (Death)
  Sender: FDA-Public Use
  Company Number: CH-ROCHE-2272947

PATIENT
  Sex: Female
  Weight: 66 kg

DRUGS (1)
  1. ALECENSA [Suspect]
     Active Substance: ALECTINIB HYDROCHLORIDE
     Indication: NON-SMALL CELL LUNG CANCER
     Route: 048
     Dates: start: 201901

REACTIONS (4)
  - Off label use [Fatal]
  - Pneumonia [Fatal]
  - Aspiration [Fatal]
  - Intentional product use issue [Fatal]

NARRATIVE: CASE EVENT DATE: 2019
